FAERS Safety Report 16710253 (Version 1)
Quarter: 2019Q3

REPORT INFORMATION
  Report Type: Other
  Country: FI (occurrence: FI)
  Receive Date: 20190816
  Receipt Date: 20190816
  Transmission Date: 20191004
  Serious: Yes (Life-Threatening)
  Sender: FDA-Public Use
  Company Number: FI-COVIS PHARMA B.V.-2019COV00162

PATIENT
  Age: 77 Year
  Sex: Female

DRUGS (3)
  1. VENTOLINE EVOHALER [Concomitant]
     Active Substance: ALBUTEROL SULFATE
     Dosage: 2 DOSAGE UNITS, 1X/DAY
     Route: 055
  2. THYROXIN [Concomitant]
     Active Substance: LEVOTHYROXINE
     Dosage: 25 ?G, 1X/DAY
     Route: 048
  3. ALVESCO [Suspect]
     Active Substance: CICLESONIDE
     Indication: ASTHMA
     Dosage: 2 DOSAGE UNITS, 1X/DAY
     Route: 055
     Dates: start: 20171013, end: 20171114

REACTIONS (3)
  - Haematuria [Recovered/Resolved]
  - Haematoma [Recovered/Resolved]
  - Epistaxis [Recovered/Resolved]

NARRATIVE: CASE EVENT DATE: 20171013
